FAERS Safety Report 6469868-1 (Version None)
Quarter: 2009Q4

REPORT INFORMATION
  Report Type: 
  Country: None (occurrence: None)
  Receive Date: 20091203
  Receipt Date: 20080221
  Transmission Date: 20100525
  Serious: Yes (Hospitalization)
  Sender: FDA-Public Use
  Company Number: US-ELI_LILLY_AND_COMPANY-US200801000066

PATIENT
  Sex: Female
  Weight: 46.259 kg

DRUGS (12)
  1. PEMETREXED [Suspect]
     Indication: NON-SMALL CELL LUNG CANCER
     Dosage: 500 MG/M2, UNK
     Route: 042
     Dates: start: 20070301, end: 20070422
  2. PEMETREXED [Suspect]
     Dosage: 300 MG/M2, UNK
     Route: 042
     Dates: start: 20070422, end: 20070808
  3. CARBOPLATIN [Suspect]
     Indication: NON-SMALL CELL LUNG CANCER
     Dosage: 5 AUC, UNK
     Route: 042
     Dates: start: 20070301, end: 20070422
  4. CARBOPLATIN [Suspect]
     Dosage: 6 AUC, UNK
     Dates: start: 20070613, end: 20070808
  5. BEVACIZUMAB [Suspect]
     Indication: NON-SMALL CELL LUNG CANCER
     Dosage: 15 MG/KG, UNK
     Route: 042
     Dates: start: 20070301
  6. RADIATION [Suspect]
     Indication: NON-SMALL CELL LUNG CANCER
     Dosage: 1.8 GY, UNK
     Dates: start: 20070301, end: 20070417
  7. PROTONIX [Concomitant]
  8. COUMADIN [Concomitant]
     Dosage: 1 MG, UNK
  9. VYTORIN [Concomitant]
  10. ASPIRIN [Concomitant]
  11. FOLIC ACID [Concomitant]
     Dosage: 1 MG, DAILY (1/D)
  12. VITAMIN B-12 [Concomitant]
     Dosage: 1000 UG, OTHER

REACTIONS (2)
  - DYSPHAGIA [None]
  - OESOPHAGEAL FISTULA [None]
